FAERS Safety Report 4913937-1 (Version None)
Quarter: 2006Q1

REPORT INFORMATION
  Report Type: 
  Country: None (occurrence: None)
  Receive Date: 20060216
  Receipt Date: 20041130
  Transmission Date: 20060701
  Serious: Yes (Hospitalization)
  Sender: FDA-Public Use
  Company Number: US-MERCK-0412USA00153

PATIENT
  Age: 36 Year
  Sex: Male
  Weight: 132 kg

DRUGS (2)
  1. VIOXX [Suspect]
     Indication: GOUT
     Route: 065
     Dates: end: 20040101
  2. VIOXX [Suspect]
     Indication: ARTHRALGIA
     Route: 065
     Dates: end: 20040101

REACTIONS (1)
  - MYOCARDIAL INFARCTION [None]
